FAERS Safety Report 6119055-1 (Version None)
Quarter: 2009Q1

REPORT INFORMATION
  Report Type: 
  Country: None (occurrence: None)
  Receive Date: 20090316
  Receipt Date: 20090305
  Transmission Date: 20090719
  Serious: Yes (Other)
  Sender: FDA-Public Use
  Company Number: US-AMGEN-US336939

PATIENT
  Sex: Male

DRUGS (4)
  1. NPLATE [Suspect]
     Indication: IDIOPATHIC THROMBOCYTOPENIC PURPURA
     Dates: start: 20080916
  2. IMMUNOGLOBULINS [Concomitant]
     Dates: start: 20051222
  3. PREDNISONE [Concomitant]
  4. CORTICOSTEROIDS [Concomitant]
     Dates: start: 20050128

REACTIONS (1)
  - WEIGHT DECREASED [None]
